FAERS Safety Report 8068573 (Version 6)
Quarter: 2016Q3

REPORT INFORMATION
  Report Type: Report from Study
  Country: JP (occurrence: JP)
  Receive Date: 20110804
  Receipt Date: 20160721
  Transmission Date: 20161109
  Serious: Yes (Life-Threatening, Other)
  Sender: FDA-Public Use
  Company Number: JP-ASTELLAS-2011JP001992

PATIENT
  Age: 34 Year
  Sex: Female
  Weight: 45 kg

DRUGS (41)
  1. METHYLPREDNISOLONE. [Suspect]
     Active Substance: METHYLPREDNISOLONE
     Indication: LUPUS NEPHRITIS
     Route: 048
     Dates: end: 20080722
  2. ALFAROL [Concomitant]
     Active Substance: ALFACALCIDOL
     Indication: HYPOTHYROIDISM
     Dosage: 0.25 ?G, ONCE DAILY
     Route: 048
  3. FLOMOX [Concomitant]
     Active Substance: CEFCAPENE PIVOXIL HYDROCHLORIDE HYDRATE
     Indication: NASOPHARYNGITIS
     Route: 065
  4. FLOMOX [Concomitant]
     Active Substance: CEFCAPENE PIVOXIL HYDROCHLORIDE HYDRATE
     Route: 065
     Dates: start: 2010
  5. THIATON [Concomitant]
     Active Substance: TIQUIZIUM BROMIDE
     Indication: CALCULUS URINARY
     Route: 065
     Dates: start: 2009, end: 20090913
  6. THIATON [Concomitant]
     Active Substance: TIQUIZIUM BROMIDE
     Indication: HYDRONEPHROSIS
  7. VOLTAREN [Concomitant]
     Active Substance: DICLOFENAC SODIUM
     Indication: UPPER RESPIRATORY TRACT INFLAMMATION
     Dosage: UNK UNK, UNKNOWN FREQ.
     Route: 065
     Dates: start: 2009
  8. HYPEN                              /00613801/ [Concomitant]
     Active Substance: ETODOLAC
     Indication: UPPER RESPIRATORY TRACT INFLAMMATION
     Dosage: UNK UNK, UNKNOWN FREQ.
     Route: 065
     Dates: start: 2009
  9. MUCOSOLVAN [Concomitant]
     Active Substance: AMBROXOL HYDROCHLORIDE
     Indication: UPPER RESPIRATORY TRACT INFLAMMATION
     Route: 065
  10. ASVERIN                            /00465502/ [Concomitant]
     Indication: UPPER RESPIRATORY TRACT INFLAMMATION
     Route: 065
  11. METHYLPREDNISOLONE. [Suspect]
     Active Substance: METHYLPREDNISOLONE
     Route: 048
     Dates: start: 20100624, end: 20100728
  12. FLOMOX [Concomitant]
     Active Substance: CEFCAPENE PIVOXIL HYDROCHLORIDE HYDRATE
     Indication: OROPHARYNGEAL PAIN
     Route: 065
     Dates: start: 2009
  13. UROCALUN [Concomitant]
     Active Substance: QUERCUS SALICINA STEM
     Indication: HYDRONEPHROSIS
  14. TACROLIMUS. [Suspect]
     Active Substance: TACROLIMUS
     Indication: LUPUS NEPHRITIS
     Route: 048
     Dates: start: 20080116, end: 20081125
  15. TACROLIMUS. [Suspect]
     Active Substance: TACROLIMUS
     Route: 048
     Dates: start: 20081126
  16. METHYLPREDNISOLONE. [Suspect]
     Active Substance: METHYLPREDNISOLONE
     Route: 048
     Dates: start: 20100729, end: 20110520
  17. THYRADIN S [Concomitant]
     Active Substance: LEVOTHYROXINE SODIUM
     Indication: HYPOTHYROIDISM
     Route: 048
  18. MYSLEE [Concomitant]
     Active Substance: ZOLPIDEM TARTRATE
     Indication: INSOMNIA
     Route: 048
  19. FLOMOX [Concomitant]
     Active Substance: CEFCAPENE PIVOXIL HYDROCHLORIDE HYDRATE
     Indication: PHARYNGITIS
     Route: 065
     Dates: start: 2009
  20. MEIACT [Concomitant]
     Active Substance: CEFDITOREN PIVOXIL
     Indication: HYDRONEPHROSIS
  21. METHYLPREDNISOLONE. [Suspect]
     Active Substance: METHYLPREDNISOLONE
     Route: 048
     Dates: start: 20110521, end: 20150724
  22. METHYLPREDNISOLONE. [Suspect]
     Active Substance: METHYLPREDNISOLONE
     Route: 048
     Dates: start: 20150725, end: 20160519
  23. METHYLPREDNISOLONE. [Suspect]
     Active Substance: METHYLPREDNISOLONE
     Dosage: 16 MG PER 4 DAYS
     Route: 048
     Dates: start: 20160520
  24. MEILAX [Concomitant]
     Active Substance: ETHYL LOFLAZEPATE
     Indication: INSOMNIA
     Route: 048
     Dates: end: 20090205
  25. MEILAX [Concomitant]
     Active Substance: ETHYL LOFLAZEPATE
     Route: 048
     Dates: start: 20090206, end: 20120413
  26. MYSLEE [Concomitant]
     Active Substance: ZOLPIDEM TARTRATE
     Route: 048
  27. BONALON [Concomitant]
     Active Substance: ALENDRONATE SODIUM
     Indication: OSTEOPOROSIS
     Route: 048
  28. FLOMOX [Concomitant]
     Active Substance: CEFCAPENE PIVOXIL HYDROCHLORIDE HYDRATE
     Indication: UPPER RESPIRATORY TRACT INFLAMMATION
     Route: 065
     Dates: start: 2008
  29. FLOMOX [Concomitant]
     Active Substance: CEFCAPENE PIVOXIL HYDROCHLORIDE HYDRATE
     Indication: GASTROENTERITIS
     Route: 065
     Dates: start: 2009
  30. COSPANON [Concomitant]
     Active Substance: FLOPROPIONE
     Indication: CALCULUS URINARY
     Route: 065
     Dates: start: 2009
  31. UROCALUN [Concomitant]
     Active Substance: QUERCUS SALICINA STEM
     Indication: CALCULUS URINARY
     Route: 065
     Dates: start: 2009, end: 20090913
  32. METHYLPREDNISOLONE. [Suspect]
     Active Substance: METHYLPREDNISOLONE
     Dosage: 20 MG PER 4 DAYS
     Route: 048
     Dates: start: 20100211, end: 20100623
  33. GASTER [Concomitant]
     Active Substance: FAMOTIDINE
     Indication: PROPHYLAXIS
     Route: 048
  34. CHLOMY [Concomitant]
     Active Substance: CHLORAMPHENICOL
     Indication: VAGINITIS BACTERIAL
     Route: 067
     Dates: start: 2009
  35. METHYLPREDNISOLONE. [Suspect]
     Active Substance: METHYLPREDNISOLONE
     Route: 048
     Dates: start: 20080723, end: 20100210
  36. ULGUT [Concomitant]
     Indication: PROPHYLAXIS
     Route: 048
  37. BAYASPIRIN [Concomitant]
     Active Substance: ASPIRIN
     Indication: PROPHYLAXIS
     Route: 048
  38. BONALON [Concomitant]
     Active Substance: ALENDRONATE SODIUM
     Indication: OSTEOPOROSIS
     Route: 048
  39. FLOMOX [Concomitant]
     Active Substance: CEFCAPENE PIVOXIL HYDROCHLORIDE HYDRATE
     Route: 065
     Dates: start: 2010
  40. COSPANON [Concomitant]
     Active Substance: FLOPROPIONE
     Indication: HYDRONEPHROSIS
  41. MEIACT [Concomitant]
     Active Substance: CEFDITOREN PIVOXIL
     Indication: CALCULUS URINARY
     Route: 065

REACTIONS (10)
  - Urachal abscess [Recovering/Resolving]
  - Gastroenteritis [Recovering/Resolving]
  - Iron deficiency anaemia [Recovering/Resolving]
  - Calculus urinary [Recovering/Resolving]
  - Upper respiratory tract inflammation [Recovering/Resolving]
  - Vaginitis bacterial [Recovering/Resolving]
  - Pharyngitis [Recovering/Resolving]
  - Hydronephrosis [Recovering/Resolving]
  - Oropharyngeal pain [Recovering/Resolving]
  - Nasopharyngitis [Recovering/Resolving]

NARRATIVE: CASE EVENT DATE: 20081029
